FAERS Safety Report 7878103-9 (Version None)
Quarter: 2011Q4

REPORT INFORMATION
  Report Type: 
  Country: None (occurrence: None)
  Receive Date: 20111101
  Receipt Date: 20111018
  Transmission Date: 20120403
  Serious: No
  Sender: FDA-Public Use
  Company Number: US-BIOGENIDEC-2011BI039320

PATIENT
  Age: 65 Year
  Sex: Female

DRUGS (1)
  1. TYSABRI [Suspect]
     Indication: CROHN'S DISEASE
     Route: 042
     Dates: start: 20111010, end: 20111010

REACTIONS (4)
  - PRURITUS [None]
  - HYPERSENSITIVITY [None]
  - URTICARIA [None]
  - INFUSION RELATED REACTION [None]
